FAERS Safety Report 5711633-4 (Version None)
Quarter: 2008Q2

REPORT INFORMATION
  Report Type: 
  Country: None (occurrence: None)
  Receive Date: 20080421
  Receipt Date: 20080409
  Transmission Date: 20081010
  Serious: Yes (Other)
  Sender: FDA-Public Use
  Company Number: US-PFIZER INC-2008032362

PATIENT
  Sex: Male
  Weight: 104.54 kg

DRUGS (15)
  1. DILANTIN [Suspect]
     Indication: EPILEPSY
  2. ZETIA [Concomitant]
  3. FLUVASTATIN [Concomitant]
  4. FOLIC ACID [Concomitant]
  5. FUROSEMIDE [Concomitant]
  6. ISOSORBIDE MONONITRATE [Concomitant]
  7. LOSARTAN POTASSIUM [Concomitant]
  8. NAPROSYN [Concomitant]
  9. NIFEDIPINE [Concomitant]
  10. NITROGLYCERIN [Concomitant]
  11. NYSTATIN [Concomitant]
  12. PERCOCET [Concomitant]
  13. PROBENECID [Concomitant]
  14. DRUG, UNSPECIFIED [Concomitant]
  15. ATENOLOL [Concomitant]

REACTIONS (5)
  - ANTICONVULSANT DRUG LEVEL DECREASED [None]
  - CONVULSION [None]
  - DEMENTIA ALZHEIMER'S TYPE [None]
  - MEMORY IMPAIRMENT [None]
  - PARKINSON'S DISEASE [None]
